FAERS Safety Report 18567263 (Version 1)
Quarter: 2020Q4

REPORT INFORMATION
  Report Type: Spontaneous
  Country: OM (occurrence: OM)
  Receive Date: 20201201
  Receipt Date: 20201201
  Transmission Date: 20210114
  Serious: Yes (Other)
  Sender: FDA-Public Use
  Company Number: OM-AMGEN-OMNSP2020192325

PATIENT
  Age: 7 Year
  Sex: Male

DRUGS (3)
  1. DEFEROXAMINE [Concomitant]
     Active Substance: DEFEROXAMINE MESYLATE
     Indication: THALASSAEMIA BETA
     Dosage: UNK
  2. DEFERASIROX. [Concomitant]
     Active Substance: DEFERASIROX
     Indication: THALASSAEMIA BETA
     Dosage: UNK
  3. FILGRASTIM [Suspect]
     Active Substance: FILGRASTIM
     Indication: AGRANULOCYTOSIS
     Dosage: 6 MICROGRAM/KILOGRAM, 5 DOSES
     Route: 065

REACTIONS (2)
  - Off label use [Unknown]
  - Febrile neutropenia [Recovered/Resolved]
